FAERS Safety Report 7793075-3 (Version None)
Quarter: 2011Q4

REPORT INFORMATION
  Report Type: 
  Country: None (occurrence: None)
  Receive Date: 20111003
  Receipt Date: 20110922
  Transmission Date: 20120403
  Serious: Yes (Hospitalization)
  Sender: FDA-Public Use
  Company Number: NO-DENTSPLY-E2B_00000010

PATIENT
  Sex: Female

DRUGS (1)
  1. CARBOCAIN [Suspect]
     Dosage: CA. 30 MG INJECTED BEFORE DENTAL PROCEDURE
     Route: 004
     Dates: start: 20110830, end: 20110830

REACTIONS (6)
  - NAUSEA [None]
  - BRADYCARDIA [None]
  - COLD SWEAT [None]
  - HYPERSENSITIVITY [None]
  - DIZZINESS [None]
  - SYNCOPE [None]
